FAERS Safety Report 7474591-0 (Version None)
Quarter: 2011Q2

REPORT INFORMATION
  Report Type: 
  Country: None (occurrence: None)
  Receive Date: 20110503
  Receipt Date: 20110425
  Transmission Date: 20111010
  Serious: Yes (Death, Other)
  Sender: FDA-Public Use
  Company Number: MPS1-1000354

PATIENT
  Age: 14 Year
  Sex: Female
  Weight: 25.5 kg

DRUGS (5)
  1. PHENOBARBITAL TAB [Concomitant]
  2. BACLOFEN [Concomitant]
  3. CAPTOPRIL [Concomitant]
  4. FUROSEMIDE (FUROSEMIDE SODIUM) [Concomitant]
  5. ALDURAZYME [Suspect]
     Indication: MUCOPOLYSACCHARIDOSIS I
     Dosage: 1.2 MG/KG, Q2W, INTRAVENOUS
     Route: 042
     Dates: start: 20050118, end: 20100701

REACTIONS (4)
  - CARDIO-RESPIRATORY ARREST [None]
  - DISEASE COMPLICATION [None]
  - DRUG INEFFECTIVE [None]
  - APALLIC SYNDROME [None]
